FAERS Safety Report 22521399 (Version 2)
Quarter: 2023Q2

REPORT INFORMATION
  Report Type: Spontaneous
  Country: US (occurrence: US)
  Receive Date: 20230605
  Receipt Date: 20230626
  Transmission Date: 20230721
  Serious: No
  Sender: FDA-Public Use
  Company Number: US-PFIZER INC-PV202300097619

PATIENT
  Age: 79 Year
  Sex: Female

DRUGS (1)
  1. AZITHROMYCIN [Suspect]
     Active Substance: AZITHROMYCIN
     Dosage: UNK

REACTIONS (5)
  - Drug hypersensitivity [Unknown]
  - Nausea [Unknown]
  - Hyperhidrosis [Unknown]
  - Abdominal pain [Unknown]
  - Discomfort [Unknown]
